FAERS Safety Report 16202089 (Version 2)
Quarter: 2019Q2

REPORT INFORMATION
  Report Type: Spontaneous
  Country: US (occurrence: US)
  Receive Date: 20190416
  Receipt Date: 20190506
  Transmission Date: 20190711
  Serious: No
  Sender: FDA-Public Use
  Company Number: US-MYLANLABS-2019M1028633

PATIENT
  Sex: Male
  Weight: 86 kg

DRUGS (3)
  1. ALBUTEROL                          /00139501/ [Concomitant]
     Active Substance: ALBUTEROL
     Dosage: INHALER
  2. WIXELA INHUB [Suspect]
     Active Substance: FLUTICASONE PROPIONATE\SALMETEROL XINAFOATE
     Indication: ASTHMA
     Dosage: 250/50 MICROGRAM, FOR APPROXIMATELY 12 DAYS
     Route: 055
  3. SINGULAIR [Concomitant]
     Active Substance: MONTELUKAST SODIUM
     Dosage: UNK

REACTIONS (8)
  - Drug ineffective [Unknown]
  - Asthma [Unknown]
  - Respiratory tract congestion [Unknown]
  - Pain [Unknown]
  - Cough [Unknown]
  - Wheezing [Unknown]
  - Product substitution issue [Unknown]
  - Dyspnoea [Unknown]
